FAERS Safety Report 24832084 (Version 1)
Quarter: 2025Q1

REPORT INFORMATION
  Report Type: Spontaneous
  Country: IN (occurrence: IN)
  Receive Date: 20250110
  Receipt Date: 20250110
  Transmission Date: 20250409
  Serious: Yes (Life-Threatening, Other)
  Sender: PFIZER
  Company Number: IN-PFIZER INC-202500002118

PATIENT
  Age: 21 Year
  Sex: Male

DRUGS (2)
  1. TRANEXAMIC ACID [Suspect]
     Active Substance: TRANEXAMIC ACID
     Route: 037
  2. BUPIVACAINE [Suspect]
     Active Substance: BUPIVACAINE

REACTIONS (11)
  - Wrong product administered [Recovered/Resolved]
  - Product packaging confusion [Recovered/Resolved]
  - Incorrect route of product administration [Recovered/Resolved]
  - Back pain [Recovered/Resolved]
  - Musculoskeletal pain [Recovered/Resolved]
  - Pain in extremity [Recovered/Resolved]
  - Myoclonus [Recovered/Resolved]
  - Seizure [Recovered/Resolved]
  - Tachycardia [Recovered/Resolved]
  - Hypertension [Recovered/Resolved]
  - Ventricular arrhythmia [Recovered/Resolved]
